FAERS Safety Report 4659742-5 (Version None)
Quarter: 2005Q2

REPORT INFORMATION
  Report Type: 
  Country: None (occurrence: None)
  Receive Date: 20050512
  Receipt Date: 20050503
  Transmission Date: 20051028
  Serious: Yes (Life-Threatening, Hospitalization, Other)
  Sender: FDA-Public Use
  Company Number: US-JNJFOC-20050400500

PATIENT
  Sex: Female
  Weight: 111.13 kg

DRUGS (8)
  1. REMICADE [Suspect]
     Indication: RHEUMATOID ARTHRITIS
     Route: 042
  2. ATACAN [Concomitant]
     Indication: BLOOD PRESSURE
  3. ADIPEX [Concomitant]
     Indication: WEIGHT
  4. LEXAPRO [Concomitant]
  5. ATIVAN [Concomitant]
  6. NORVASC [Concomitant]
  7. ALLOPURINOL [Concomitant]
  8. PEPCID [Concomitant]

REACTIONS (1)
  - HODGKIN'S DISEASE RECURRENT [None]
